FAERS Safety Report 17572197 (Version 3)
Quarter: 2020Q3

REPORT INFORMATION
  Report Type: Spontaneous
  Country: US (occurrence: US)
  Receive Date: 20200323
  Receipt Date: 20200904
  Transmission Date: 20201102
  Serious: Yes (Other)
  Sender: FDA-Public Use
  Company Number: US-GILEAD-2020-0455841

PATIENT
  Age: 47 Year
  Sex: Male

DRUGS (33)
  1. CEFUROXIME. [Concomitant]
     Active Substance: CEFUROXIME
  2. DEPAKOTE [Concomitant]
     Active Substance: DIVALPROEX SODIUM
  3. MAGNESIUM CHLORIDE. [Concomitant]
     Active Substance: MAGNESIUM CHLORIDE
  4. GABAPENTIN. [Concomitant]
     Active Substance: GABAPENTIN
  5. TIVICAY [Concomitant]
     Active Substance: DOLUTEGRAVIR SODIUM
  6. OXYBUTYNIN. [Concomitant]
     Active Substance: OXYBUTYNIN CHLORIDE
  7. VIREAD [Suspect]
     Active Substance: TENOFOVIR DISOPROXIL FUMARATE
     Indication: HIV INFECTION
     Dosage: UNK
     Route: 065
     Dates: start: 201301, end: 201407
  8. ISENTRESS [Concomitant]
     Active Substance: RALTEGRAVIR POTASSIUM
  9. RALTEGRAVIR. [Concomitant]
     Active Substance: RALTEGRAVIR
  10. VITAMIN B12 [VITAMIN B12 NOS] [Concomitant]
     Active Substance: CYANOCOBALAMIN
  11. CALCITROL [CALCITRIOL] [Concomitant]
     Active Substance: CALCITRIOL
  12. ASPIRIN [ACETYLSALICYLIC ACID] [Concomitant]
     Active Substance: ASPIRIN
  13. COMBIVIR [Concomitant]
     Active Substance: LAMIVUDINE\ZIDOVUDINE
  14. FERROUS SULFATE. [Concomitant]
     Active Substance: FERROUS SULFATE
  15. EMTRIVA [Concomitant]
     Active Substance: EMTRICITABINE
  16. TRIUMEQ [Concomitant]
     Active Substance: ABACAVIR SULFATE\DOLUTEGRAVIR SODIUM\LAMIVUDINE
  17. MAGNESIUM [Concomitant]
     Active Substance: MAGNESIUM
  18. OMEPRAZOLE. [Concomitant]
     Active Substance: OMEPRAZOLE
  19. TRUVADA [Suspect]
     Active Substance: EMTRICITABINE\TENOFOVIR DISOPROXIL FUMARATE
     Indication: HIV INFECTION
     Dosage: UNK
     Route: 048
     Dates: start: 2013
  20. PREZISTA [Concomitant]
     Active Substance: DARUNAVIR ETHANOLATE
  21. VIRACEPT [Concomitant]
     Active Substance: NELFINAVIR MESYLATE
  22. ZIAGEN [Concomitant]
     Active Substance: ABACAVIR SULFATE
  23. NORVIR [Concomitant]
     Active Substance: RITONAVIR
  24. CALCIUM [Concomitant]
     Active Substance: CALCIUM
  25. ZERIT [Concomitant]
     Active Substance: STAVUDINE
  26. DAPSONE. [Concomitant]
     Active Substance: DAPSONE
  27. TRIMIX [AMINO ACIDS NOS;FATS NOS;GLUCOSE] [Concomitant]
  28. TRUVADA [Suspect]
     Active Substance: EMTRICITABINE\TENOFOVIR DISOPROXIL FUMARATE
     Dosage: UNK
     Route: 065
     Dates: start: 201203, end: 201301
  29. CRIXIVAN [Concomitant]
     Active Substance: INDINAVIR SULFATE
  30. SUSTIVA [Concomitant]
     Active Substance: EFAVIRENZ
  31. VIDEX EC [Concomitant]
     Active Substance: DIDANOSINE
  32. ENABLEX [Concomitant]
     Active Substance: DARIFENACIN HYDROBROMIDE
  33. POTASSIUM [Concomitant]
     Active Substance: POTASSIUM

REACTIONS (7)
  - Emotional distress [Not Recovered/Not Resolved]
  - Anxiety [Not Recovered/Not Resolved]
  - Economic problem [Not Recovered/Not Resolved]
  - End stage renal disease [Not Recovered/Not Resolved]
  - Renal failure [Not Recovered/Not Resolved]
  - Anhedonia [Not Recovered/Not Resolved]
  - Pain [Not Recovered/Not Resolved]

NARRATIVE: CASE EVENT DATE: 201301
